FAERS Safety Report 6690891-6 (Version None)
Quarter: 2010Q2

REPORT INFORMATION
  Report Type: 
  Country: None (occurrence: None)
  Receive Date: 20100421
  Receipt Date: 20100408
  Transmission Date: 20101027
  Serious: Yes (Other)
  Sender: FDA-Public Use
  Company Number: PHHY2010FR24151

PATIENT
  Sex: Male

DRUGS (8)
  1. TASIGNA [Suspect]
     Indication: CHRONIC MYELOID LEUKAEMIA
     Dosage: UNK
     Dates: start: 20090901
  2. UN-ALFA [Concomitant]
  3. CORTANCYL [Concomitant]
     Dosage: 7.5 MG, QD
  4. CALCIDIA [Concomitant]
  5. LEXOMIL [Concomitant]
  6. DEROXAT [Concomitant]
     Dosage: 20 MG, QD
     Dates: start: 20080101
  7. NEURONTIN [Concomitant]
     Indication: EPILEPSY
     Dosage: UNK
     Dates: start: 20090501
  8. XANAX [Concomitant]
     Dosage: UNK
     Dates: start: 20090501

REACTIONS (6)
  - ANAEMIA [None]
  - GENERAL PHYSICAL HEALTH DETERIORATION [None]
  - HAEMOGLOBIN DECREASED [None]
  - INFLAMMATION [None]
  - METABOLIC DISORDER [None]
  - SOMNOLENCE [None]
